FAERS Safety Report 6580148-6 (Version None)
Quarter: 2010Q1

REPORT INFORMATION
  Report Type: 
  Country: None (occurrence: None)
  Receive Date: 20100203
  Receipt Date: 20100118
  Transmission Date: 20100710
  Serious: Yes (Hospitalization, Other)
  Sender: FDA-Public Use
  Company Number: 2010R3-30616

PATIENT
  Age: 24 Year
  Sex: Male

DRUGS (2)
  1. CO-TRIMOXAZOLE (SULFAMETHOXAZOLE, TRIMETHOPRIM) UNKNOWN [Suspect]
     Indication: PNEUMOCYSTIS JIROVECI INFECTION
  2. CO-TRIMOXAZOLE (CO-TRIMOXAZOLE) INJECTION [Suspect]
     Indication: PNEUMOCYSTIS JIROVECI INFECTION
     Dosage: INTRAVENOUS
     Route: 042

REACTIONS (7)
  - CHOLANGITIS [None]
  - CHOLESTASIS [None]
  - CYTOMEGALOVIRUS VIRAEMIA [None]
  - HEPATITIS [None]
  - HEPATOTOXICITY [None]
  - LIVER ABSCESS [None]
  - RESPIRATORY FAILURE [None]
